FAERS Safety Report 19573510 (Version 1)
Quarter: 2021Q3

REPORT INFORMATION
  Report Type: Spontaneous
  Country: US (occurrence: US)
  Receive Date: 20210717
  Receipt Date: 20210717
  Transmission Date: 20211014
  Serious: Yes (Life-Threatening, Other)
  Sender: FDA-Public Use
  Company Number: US-DRREDDYS-LIT/USA/21/0137790

PATIENT
  Age: 22 Month
  Sex: Female
  Weight: 14.5 kg

DRUGS (2)
  1. CYCLOPHOSPHAMIDE. [Suspect]
     Active Substance: CYCLOPHOSPHAMIDE
     Indication: NEUROBLASTOMA
  2. THIOTEPA FOR INJECTION [Suspect]
     Active Substance: THIOTEPA
     Indication: NEUROBLASTOMA
     Route: 042

REACTIONS (2)
  - Vomiting [Unknown]
  - Mucosal inflammation [Unknown]
